FAERS Safety Report 9238466 (Version 1)
Quarter: 2013Q2

REPORT INFORMATION
  Report Type: Spontaneous
  Country: US (occurrence: None)
  Receive Date: 20130416
  Receipt Date: 20130416
  Transmission Date: 20140414
  Serious: Yes (Hospitalization, Other)
  Sender: FDA-Public Use
  Company Number: ACO_35407_2013

PATIENT
  Age: 39 Year
  Sex: Female
  Weight: 59.1 kg

DRUGS (13)
  1. AMPYRA [Suspect]
     Indication: GAIT DISTURBANCE
  2. ENALAPRIL MALEATE (ENALAPRIL MALEATE) [Concomitant]
  3. LOVASTATIN (LOVASTATIN) [Concomitant]
  4. NOVOLOG (INSULIN ASPART) [Concomitant]
  5. BACLOFEN (BACLOFEN) [Concomitant]
  6. FISH OIL (FISH OIL) [Concomitant]
  7. CALCIUM (CALCIUM) [Concomitant]
  8. MULTIVITAMIN (VITAMINS NOS) [Concomitant]
  9. AVONEX (INTEFERON BETA-1A) [Concomitant]
  10. VITAMIN D (ERGOCALCIFEROL) [Concomitant]
  11. ESTRADIOL W/MEDROXYPROGESTERONE (ESTRADIOL W/MEDROXYPROGESTERONE) [Concomitant]
  12. CYTOXAN (CYCLOPHOSPHAMIDE) [Concomitant]
  13. SOLU MEDROL (METHYPREDNISOLONE SODIUM SUCCINATE) [Concomitant]

REACTIONS (14)
  - Convulsion [None]
  - Hyperglycaemia [None]
  - Migraine [None]
  - Hypoaesthesia [None]
  - Pyrexia [None]
  - Dehydration [None]
  - Gait disturbance [None]
  - Condition aggravated [None]
  - Crying [None]
  - Reading disorder [None]
  - Feeling abnormal [None]
  - Aphasia [None]
  - Thinking abnormal [None]
  - General physical health deterioration [None]
